FAERS Safety Report 8928846 (Version 1)
Quarter: 2012Q4

REPORT INFORMATION
  Report Type: 
  Country: DE (occurrence: FR)
  Receive Date: 20121128
  Receipt Date: 20121128
  Transmission Date: 20130627
  Serious: Yes (Other)
  Sender: FDA-Public Use
  Company Number: FR-BRISTOL-MYERS SQUIBB COMPANY-17148784

PATIENT
  Age: 65 Year
  Sex: Male

DRUGS (5)
  1. ERBITUX SOLN FOR INF [Suspect]
     Indication: HEAD AND NECK CANCER
     Dosage: 13Aug12-13Aug12
19Aug-19Aug12
3Oct-3Oct12
17Oct-17Oct12
     Route: 042
     Dates: start: 20120813
  2. CARBOPLATIN [Suspect]
     Indication: HEAD AND NECK CANCER
     Dosage: 13Ag12-13Ag12
3Oct-3Oct12
     Route: 042
     Dates: start: 20120813
  3. IMOVANE [Suspect]
     Route: 048
     Dates: start: 20120808, end: 20121023
  4. DUROGESIC [Concomitant]
     Dosage: soln for inj
     Route: 058
     Dates: start: 20120808
  5. KABIVEN [Concomitant]
     Indication: NUTRITIONAL SUPPORT
     Route: 042
     Dates: start: 20120127, end: 20121021

REACTIONS (2)
  - Jaundice cholestatic [Recovering/Resolving]
  - Hepatitis [Recovering/Resolving]
